FAERS Safety Report 6774168-6 (Version None)
Quarter: 2010Q2

REPORT INFORMATION
  Report Type: 
  Country: None (occurrence: None)
  Receive Date: 20100617
  Receipt Date: 20100608
  Transmission Date: 20101027
  Serious: Yes (Death)
  Sender: FDA-Public Use
  Company Number: JP-JNJFOC-20100508636

PATIENT
  Age: 80 Year
  Sex: Male

DRUGS (7)
  1. CRAVIT [Suspect]
     Indication: RESPIRATORY TRACT INFECTION
     Route: 048
  2. DEPAKENE [Concomitant]
     Indication: EPILEPSY
     Route: 048
  3. LACTULOSE [Concomitant]
     Route: 048
  4. GABAPEN [Concomitant]
  5. ALINAMIN F (FURSULTIAMINE) [Concomitant]
     Route: 048
  6. AMLODIN [Concomitant]
     Indication: HYPERTENSION
     Route: 048
  7. URALYT-U [Concomitant]
     Indication: BENIGN PROSTATIC HYPERPLASIA
     Route: 048

REACTIONS (4)
  - HEART RATE DECREASED [None]
  - HYPOVENTILATION [None]
  - OXYGEN SATURATION DECREASED [None]
  - STATUS EPILEPTICUS [None]
